FAERS Safety Report 5360260-X (Version None)
Quarter: 2007Q2

REPORT INFORMATION
  Report Type: 
  Country: None (occurrence: None)
  Receive Date: 20070614
  Receipt Date: 20070606
  Transmission Date: 20071010
  Serious: Yes (Other)
  Sender: FDA-Public Use
  Company Number: S07-USA-02475-01

PATIENT
  Age: 35 Year
  Sex: Female

DRUGS (2)
  1. CELEXA [Suspect]
     Indication: DEPRESSION
     Dosage: 20 MG QD PO
     Route: 048
     Dates: start: 20061201
  2. ALCOHOL [Suspect]
     Dates: start: 20070501

REACTIONS (2)
  - ALCOHOL USE [None]
  - LEGAL PROBLEM [None]
